FAERS Safety Report 11881503 (Version 1)
Quarter: 2015Q4

REPORT INFORMATION
  Report Type: Spontaneous
  Country: IN (occurrence: IN)
  Receive Date: 20151231
  Receipt Date: 20151231
  Transmission Date: 20160305
  Serious: Yes (Other)
  Sender: FDA-Public Use
  Company Number: IN-ACCORD-036589

PATIENT
  Age: 35 Year
  Sex: Male

DRUGS (1)
  1. MITOMYCIN. [Suspect]
     Active Substance: MITOMYCIN
     Indication: PROPHYLAXIS

REACTIONS (2)
  - Choroidal detachment [Recovered/Resolved]
  - Vomiting [Unknown]
